FAERS Safety Report 9695026 (Version 1)
Quarter: 2013Q4

REPORT INFORMATION
  Report Type: Spontaneous
  Country: TR (occurrence: TR)
  Receive Date: 20131119
  Receipt Date: 20131119
  Transmission Date: 20140711
  Serious: Yes (Other)
  Sender: FDA-Public Use
  Company Number: TR-CELGENEUS-161-20785-13111068

PATIENT
  Age: 75 Year
  Sex: Male

DRUGS (4)
  1. THALIDOMIDE CELGENE [Suspect]
     Indication: PLASMA CELL MYELOMA
     Route: 048
  2. METHYLPREDNISOLONE [Concomitant]
     Indication: PLASMA CELL MYELOMA
     Route: 065
  3. METHYLPREDNISOLONE [Concomitant]
     Route: 065
  4. MELPHALAN [Concomitant]
     Indication: PLASMA CELL MYELOMA
     Route: 065

REACTIONS (1)
  - Organising pneumonia [Recovering/Resolving]
